FAERS Safety Report 7955310-8 (Version None)
Quarter: 2011Q4

REPORT INFORMATION
  Report Type: 
  Country: None (occurrence: None)
  Receive Date: 20111202
  Receipt Date: 20111121
  Transmission Date: 20120403
  Serious: Yes (Hospitalization)
  Sender: FDA-Public Use
  Company Number: US-MYLANLABS-2011S1024234

PATIENT
  Age: 30 Year
  Sex: Female

DRUGS (3)
  1. NAPROXEN [Suspect]
     Indication: ARTHRALGIA
     Route: 065
     Dates: end: 19910101
  2. NAPROXEN [Suspect]
     Route: 065
     Dates: end: 19910101
  3. PREDNISONE TAB [Concomitant]
     Indication: SYSTEMIC LUPUS ERYTHEMATOSUS
     Dosage: UP TO 12 MG/DAY
     Route: 065

REACTIONS (2)
  - LIVER INJURY [None]
  - CHOLESTASIS [None]
